FAERS Safety Report 7808166-8 (Version None)
Quarter: 2011Q4

REPORT INFORMATION
  Report Type: 
  Country: None (occurrence: None)
  Receive Date: 20111011
  Receipt Date: 20110927
  Transmission Date: 20120403
  Serious: Yes (Other)
  Sender: FDA-Public Use
  Company Number: BR-MERCK-1106BRA00036

PATIENT
  Age: 79 Year
  Sex: Female

DRUGS (4)
  1. CHOLECALCIFEROL [Concomitant]
     Route: 065
     Dates: start: 20100101
  2. FOSAMAX [Suspect]
     Route: 065
     Dates: start: 19960101, end: 20060101
  3. STRONTIUM RANELATE [Concomitant]
     Route: 065
  4. IBANDRONATE SODIUM [Suspect]
     Route: 065
     Dates: start: 20070101, end: 20100101

REACTIONS (1)
  - FEMUR FRACTURE [None]
